FAERS Safety Report 6140263-8 (Version None)
Quarter: 2009Q1

REPORT INFORMATION
  Report Type: 
  Country: None (occurrence: None)
  Receive Date: 20090324
  Receipt Date: 20090317
  Transmission Date: 20090719
  Serious: Yes (Death)
  Sender: FDA-Public Use
  Company Number: 2008-00911

PATIENT
  Age: 68 Year
  Sex: Male
  Weight: 65 kg

DRUGS (1)
  1. VELCADE [Suspect]
     Indication: MULTIPLE MYELOMA
     Dosage: 2.4 MG
     Dates: start: 20070604, end: 20070823

REACTIONS (3)
  - CHRONIC HEPATITIS [None]
  - HEPATIC NECROSIS [None]
  - HEPATIC STEATOSIS [None]
